FAERS Safety Report 19145250 (Version 1)
Quarter: 2021Q2

REPORT INFORMATION
  Report Type: Spontaneous
  Country: US (occurrence: US)
  Receive Date: 20210416
  Receipt Date: 20210416
  Transmission Date: 20210717
  Serious: Yes (Hospitalization)
  Sender: FDA-Public Use
  Company Number: US-MYLANLABS-2021M1022083

PATIENT
  Age: 8 Year
  Sex: Male

DRUGS (2)
  1. VANCOMYCIN [Suspect]
     Active Substance: VANCOMYCIN
     Indication: ENDOCARDITIS
     Route: 065
  2. NAFCILLIN [Suspect]
     Active Substance: NAFCILLIN SODIUM
     Indication: ENDOCARDITIS
     Route: 065

REACTIONS (1)
  - Treatment failure [Unknown]
